FAERS Safety Report 22277610 (Version 2)
Quarter: 2023Q2

REPORT INFORMATION
  Report Type: Report from Study
  Country: US (occurrence: US)
  Receive Date: 20230503
  Receipt Date: 20230508
  Transmission Date: 20230721
  Serious: No
  Sender: FDA-Public Use
  Company Number: US-002147023-NVSC2023US098125

PATIENT
  Sex: Male
  Weight: 107.05 kg

DRUGS (1)
  1. COSENTYX [Suspect]
     Active Substance: SECUKINUMAB
     Indication: Psoriasis
     Dosage: UNK
     Route: 065

REACTIONS (5)
  - Dermatitis psoriasiform [Unknown]
  - Psoriasis [Unknown]
  - Nail psoriasis [Unknown]
  - Nail pitting [Unknown]
  - Drug ineffective [Unknown]
